FAERS Safety Report 5273322-2 (Version None)
Quarter: 2007Q1

REPORT INFORMATION
  Report Type: 
  Country: None (occurrence: None)
  Receive Date: 20070319
  Receipt Date: 20070301
  Transmission Date: 20070707
  Serious: Yes (Death)
  Sender: FDA-Public Use
  Company Number: 14147

PATIENT
  Age: 66 Year
  Sex: Male

DRUGS (4)
  1. VINCRISTINE [Suspect]
  2. MABTHERA. MFR: NOT SPECIFIED [Suspect]
  3. CYCLOPHOSPHAMIDE [Suspect]
  4. PREDNISOLONE [Suspect]

REACTIONS (3)
  - HEPATIC FAILURE [None]
  - NO THERAPEUTIC RESPONSE [None]
  - PERIPHERAL T-CELL LYMPHOMA UNSPECIFIED [None]
